FAERS Safety Report 23489110 (Version 2)
Quarter: 2024Q1

REPORT INFORMATION
  Report Type: Spontaneous
  Country: US (occurrence: US)
  Receive Date: 20240206
  Receipt Date: 20240213
  Transmission Date: 20240410
  Serious: Yes (Other)
  Sender: FDA-Public Use
  Company Number: US-009507513-2401USA016868

PATIENT
  Sex: Female
  Weight: 90.703 kg

DRUGS (4)
  1. ZERBAXA [Suspect]
     Active Substance: CEFTOLOZANE SULFATE\TAZOBACTAM SODIUM
     Indication: Pyelonephritis
     Dosage: UNK
     Dates: end: 20240128
  2. ZERBAXA [Suspect]
     Active Substance: CEFTOLOZANE SULFATE\TAZOBACTAM SODIUM
     Dosage: UNK
     Dates: start: 2024, end: 20240204
  3. ZOLOFT [Concomitant]
     Active Substance: SERTRALINE HYDROCHLORIDE
  4. KLONOPIN [Concomitant]
     Active Substance: CLONAZEPAM

REACTIONS (2)
  - Tardive dyskinesia [Unknown]
  - Pain [Unknown]

NARRATIVE: CASE EVENT DATE: 20240101
